FAERS Safety Report 5002129-6 (Version None)
Quarter: 2006Q2

REPORT INFORMATION
  Report Type: 
  Country: None (occurrence: None)
  Receive Date: 20060510
  Receipt Date: 20060504
  Transmission Date: 20061013
  Serious: Yes (Death)
  Sender: FDA-Public Use
  Company Number: 2006060229

PATIENT
  Age: 6 Month

DRUGS (2)
  1. ZYRTEC [Suspect]
     Indication: ILL-DEFINED DISORDER
     Dates: start: 20060101
  2. ALBUTEROL [Concomitant]

REACTIONS (1)
  - SUDDEN INFANT DEATH SYNDROME [None]
